FAERS Safety Report 6972969-2 (Version None)
Quarter: 2010Q3

REPORT INFORMATION
  Report Type: 
  Country: None (occurrence: None)
  Receive Date: 20100909
  Receipt Date: 20100809
  Transmission Date: 20110219
  Serious: No
  Sender: FDA-Public Use
  Company Number: US-KINGPHARMUSA00001-K201001007

PATIENT
  Sex: Female
  Weight: 79.365 kg

DRUGS (5)
  1. EMBEDA [Suspect]
     Indication: PAIN
     Dosage: 20 MG, QHS
     Route: 048
     Dates: start: 20100624
  2. EMBEDA [Suspect]
     Indication: ERYTHROMELALGIA
  3. CLONAZEPAM [Concomitant]
     Dosage: 1 MG, QD
  4. GABAPENTIN [Concomitant]
     Indication: NEURALGIA
     Dosage: 2100 UNK, QD
  5. LEVOXYL [Concomitant]
     Indication: THYROID DISORDER
     Dosage: 125 MCG, QD

REACTIONS (5)
  - FATIGUE [None]
  - HEADACHE [None]
  - INFLUENZA LIKE ILLNESS [None]
  - MUSCULAR WEAKNESS [None]
  - PAIN [None]
